FAERS Safety Report 14219388 (Version 1)
Quarter: 2017Q4

REPORT INFORMATION
  Report Type: Spontaneous
  Country: US (occurrence: US)
  Receive Date: 20171123
  Receipt Date: 20171123
  Transmission Date: 20180321
  Serious: No
  Sender: FDA-Public Use
  Company Number: US-JNJFOC-20171104033

PATIENT
  Age: 69 Year
  Sex: Male

DRUGS (1)
  1. INVOKANA [Suspect]
     Active Substance: CANAGLIFLOZIN
     Indication: DIABETES MELLITUS
     Route: 048

REACTIONS (7)
  - Dyspepsia [Unknown]
  - Polydipsia [Unknown]
  - Dehydration [Unknown]
  - Weight decreased [Unknown]
  - Liver function test increased [Unknown]
  - Pollakiuria [Unknown]
  - Constipation [Unknown]

NARRATIVE: CASE EVENT DATE: 20151130
